FAERS Safety Report 7012046-8 (Version None)
Quarter: 2010Q3

REPORT INFORMATION
  Report Type: 
  Country: None (occurrence: None)
  Receive Date: 20100924
  Receipt Date: 20100917
  Transmission Date: 20110219
  Serious: Yes (Hospitalization)
  Sender: FDA-Public Use
  Company Number: US-RB-015527-10

PATIENT
  Age: 41 Year
  Sex: Female

DRUGS (2)
  1. SUBOXONE [Suspect]
     Indication: DRUG DEPENDENCE
     Route: 060
     Dates: start: 20080101
  2. KLONOPIN [Concomitant]
     Indication: ANXIETY DISORDER
     Route: 048

REACTIONS (2)
  - ANXIETY [None]
  - HOMICIDAL IDEATION [None]
